FAERS Safety Report 9412779 (Version 2)
Quarter: 2013Q3

REPORT INFORMATION
  Report Type: Spontaneous
  Country: DE (occurrence: DE)
  Receive Date: 20130722
  Receipt Date: 20130919
  Transmission Date: 20140515
  Serious: Yes (Life-Threatening, Hospitalization, Other)
  Sender: FDA-Public Use
  Company Number: DE-JNJFOC-20130709626

PATIENT
  Sex: Male
  Weight: 68 kg

DRUGS (10)
  1. XARELTO [Suspect]
     Indication: ATRIAL FIBRILLATION
     Route: 048
     Dates: start: 20130513
  2. XARELTO [Suspect]
     Indication: CEREBROVASCULAR ACCIDENT
     Route: 048
     Dates: start: 20130513
  3. MIRTAZAPIN [Suspect]
     Indication: PRODUCT USED FOR UNKNOWN INDICATION
     Route: 065
  4. ASPIRIN [Concomitant]
     Route: 065
  5. METOPROLOL [Concomitant]
     Route: 065
  6. DIGITOXIN [Concomitant]
     Route: 065
  7. SIMVASTATIN [Concomitant]
     Route: 065
  8. MELPERON [Concomitant]
     Route: 065
  9. CARBAMAZEPIN [Concomitant]
     Route: 065
  10. RAMIPRIL [Concomitant]
     Route: 065

REACTIONS (1)
  - Renal failure chronic [Recovered/Resolved]
